FAERS Safety Report 24218251 (Version 1)
Quarter: 2024Q3

REPORT INFORMATION
  Report Type: Report from Study
  Country: CA (occurrence: CA)
  Receive Date: 20240816
  Receipt Date: 20240816
  Transmission Date: 20241017
  Serious: Yes (Other)
  Sender: CURRAX PHARMACEUTICALS
  Company Number: CA-BAUSCH-BL-2024-010989

PATIENT
  Age: 70 Year
  Sex: Female

DRUGS (6)
  1. CONTRAVE [Suspect]
     Active Substance: BUPROPION HYDROCHLORIDE\NALTREXONE HYDROCHLORIDE
     Indication: Weight control
     Dosage: 90/8 MG, 1 TABLET AM
     Route: 048
     Dates: start: 20240712, end: 20240718
  2. CONTRAVE [Suspect]
     Active Substance: BUPROPION HYDROCHLORIDE\NALTREXONE HYDROCHLORIDE
     Dosage: 90/8 MG, 1 PILL/ 2 TIMES DAY (1 DOSAGE FORMS,1 IN 12 HR)
     Route: 048
     Dates: start: 20240719, end: 20240725
  3. CONTRAVE [Suspect]
     Active Substance: BUPROPION HYDROCHLORIDE\NALTREXONE HYDROCHLORIDE
     Dosage: 90/8 MG, 2 PILLS IN MORNING AND ONE PILL AT NIGHT (1 IN 12 HR)
     Route: 048
     Dates: start: 20240726, end: 20240801
  4. CONTRAVE [Suspect]
     Active Substance: BUPROPION HYDROCHLORIDE\NALTREXONE HYDROCHLORIDE
     Dosage: 90/8 MG, 2 PILLS MORNING AND 2 PILLS AT NIGHT
     Route: 048
     Dates: start: 20240802, end: 20240802
  5. CONTRAVE [Suspect]
     Active Substance: BUPROPION HYDROCHLORIDE\NALTREXONE HYDROCHLORIDE
     Dosage: 90/8 MG, 2 PILLS MORNING AND 1 PILL AT NIGHT
     Route: 048
     Dates: start: 20240803, end: 20240804
  6. SYNTHROID [Concomitant]
     Active Substance: LEVOTHYROXINE SODIUM
     Indication: Hypothyroidism
     Dosage: 25 MCG,1 IN 1 D
     Route: 048

REACTIONS (8)
  - Tongue disorder [Recovered/Resolved]
  - Drug eruption [Recovering/Resolving]
  - Paraesthesia oral [Not Recovered/Not Resolved]
  - Abdominal discomfort [Not Recovered/Not Resolved]
  - Fatigue [Recovering/Resolving]
  - Diarrhoea [Recovered/Resolved]
  - Nausea [Not Recovered/Not Resolved]
  - Dysgeusia [Not Recovered/Not Resolved]

NARRATIVE: CASE EVENT DATE: 20240712
